FAERS Safety Report 7887720-1 (Version None)
Quarter: 2011Q4

REPORT INFORMATION
  Report Type: 
  Country: None (occurrence: None)
  Receive Date: 20111103
  Receipt Date: 20111020
  Transmission Date: 20120403
  Serious: Yes (Death)
  Sender: FDA-Public Use
  Company Number: GB-AMGEN-GBRCT2011055381

PATIENT
  Age: 64 Year
  Sex: Male

DRUGS (2)
  1. ETANERCEPT [Suspect]
     Indication: RHEUMATOID ARTHRITIS
     Dosage: 25 MG, 2 TIMES/WK
     Dates: start: 20040315
  2. METHOTREXATE [Concomitant]
     Dosage: UNK

REACTIONS (1)
  - LUNG CANCER METASTATIC [None]
